FAERS Safety Report 4528634-4 (Version None)
Quarter: 2004Q4

REPORT INFORMATION
  Report Type: 
  Country: None (occurrence: None)
  Receive Date: 20041216
  Receipt Date: 20041025
  Transmission Date: 20050328
  Serious: Yes (Life-Threatening, Hospitalization, Disabling)
  Sender: FDA-Public Use
  Company Number: US-MERCK-0410USA03723

PATIENT
  Age: 54 Year
  Sex: Female
  Weight: 82 kg

DRUGS (6)
  1. VIOXX [Suspect]
     Indication: FIBROMYALGIA
     Route: 048
     Dates: start: 20030301, end: 20040718
  2. VIOXX [Suspect]
     Indication: ARTHRITIS
     Route: 048
     Dates: start: 20030301, end: 20040718
  3. ESTRATEST [Concomitant]
     Indication: MENOPAUSAL SYMPTOMS
     Route: 048
     Dates: end: 20040718
  4. PAXIL CR [Concomitant]
     Route: 048
  5. AMARYL [Concomitant]
     Route: 048
  6. COZAAR [Concomitant]
     Route: 048

REACTIONS (2)
  - CEREBROVASCULAR ACCIDENT [None]
  - ULCER [None]
